FAERS Safety Report 18461396 (Version 20)
Quarter: 2021Q3

REPORT INFORMATION
  Report Type: Report from Study
  Country: CH (occurrence: CH)
  Receive Date: 20201104
  Receipt Date: 20210916
  Transmission Date: 20211014
  Serious: Yes (Hospitalization, Other)
  Sender: FDA-Public Use
  Company Number: NVSC2020CH285445

PATIENT
  Age: 74 Year
  Sex: Female
  Weight: 105.2 kg

DRUGS (8)
  1. LETROZOLE. [Suspect]
     Active Substance: LETROZOLE
     Dosage: 2.5 MG, QD
     Route: 048
     Dates: start: 20201001
  2. LETROZOLE. [Suspect]
     Active Substance: LETROZOLE
     Dosage: 2.5 MG
     Route: 048
     Dates: start: 20201030
  3. SPIRONOLACTON [Concomitant]
     Active Substance: SPIRONOLACTONE
     Indication: PRODUCT USED FOR UNKNOWN INDICATION
     Dosage: 50 MG
     Route: 048
  4. TORASEMID [Concomitant]
     Active Substance: TORSEMIDE
     Indication: PRODUCT USED FOR UNKNOWN INDICATION
     Dosage: 10 MG
     Route: 048
  5. KISQALI [Suspect]
     Active Substance: RIBOCICLIB
     Dosage: 400 MG
     Route: 048
     Dates: start: 20200930
  6. ATENOLOL. [Concomitant]
     Active Substance: ATENOLOL
     Indication: HYPERTONIA
     Dosage: 50 MG
     Route: 048
  7. KISQALI [Suspect]
     Active Substance: RIBOCICLIB
     Indication: BREAST CANCER
     Dosage: 600 MG, QW3
     Route: 048
     Dates: start: 20200930
  8. LETROZOLE. [Suspect]
     Active Substance: LETROZOLE
     Indication: BREAST CANCER
     Dosage: 2.5 MG
     Route: 048
     Dates: start: 20200930

REACTIONS (25)
  - Neuropathy peripheral [Recovering/Resolving]
  - Anaemia [Not Recovered/Not Resolved]
  - Weight decreased [Recovering/Resolving]
  - Chest pain [Unknown]
  - Pancytopenia [Recovering/Resolving]
  - Procedural pain [Unknown]
  - White blood cell count decreased [Recovered/Resolved]
  - Throat irritation [Unknown]
  - Asthenia [Unknown]
  - Urosepsis [Recovered/Resolved]
  - Lymphocyte count decreased [Unknown]
  - Vaginal infection [Recovered/Resolved]
  - Dyspnoea [Recovering/Resolving]
  - Atrial fibrillation [Recovered/Resolved]
  - Palpitations [Recovered/Resolved]
  - Pleural infection [Recovering/Resolving]
  - Sepsis [Recovered/Resolved]
  - Electrocardiogram QT prolonged [Recovered/Resolved]
  - Pleuritic pain [Not Recovered/Not Resolved]
  - General physical health deterioration [Unknown]
  - Neutropenia [Recovered/Resolved]
  - Thrombocytopenia [Recovered/Resolved]
  - Syncope [Recovered/Resolved]
  - Constipation [Recovered/Resolved]
  - Dyspnoea exertional [Unknown]

NARRATIVE: CASE EVENT DATE: 202010
